FAERS Safety Report 20160242 (Version 1)
Quarter: 2021Q4

REPORT INFORMATION
  Report Type: Other
  Country: AR (occurrence: AR)
  Receive Date: 20211208
  Receipt Date: 20211208
  Transmission Date: 20220303
  Serious: Yes (Hospitalization, Other)
  Sender: FDA-Public Use
  Company Number: AR-002147023-PHHY2018AR119393

PATIENT
  Age: 73 Year
  Sex: Female

DRUGS (7)
  1. XOLAIR [Suspect]
     Active Substance: OMALIZUMAB
     Indication: Asthma
     Dosage: 150 MG, QMO (SOLUTION)
     Route: 058
     Dates: start: 20160101
  2. XOLAIR [Suspect]
     Active Substance: OMALIZUMAB
     Dosage: 150 MG, QMO
     Route: 058
     Dates: start: 20160110
  3. XOLAIR [Suspect]
     Active Substance: OMALIZUMAB
     Dosage: 150 MG, QMO
     Route: 065
     Dates: start: 20181009
  4. ALBUTEROL [Concomitant]
     Active Substance: ALBUTEROL
     Indication: Product used for unknown indication
     Dosage: UNK
     Route: 065
  5. MINUSLIP DUO [Concomitant]
     Indication: Blood cholesterol abnormal
     Dosage: 1 DF, QHS (AT NIGHT)
     Route: 065
  6. LEVOTHYROXINE [Concomitant]
     Active Substance: LEVOTHYROXINE
     Indication: Product used for unknown indication
     Dosage: UNK
     Route: 065
  7. SALMETEROL [Concomitant]
     Active Substance: SALMETEROL
     Indication: Product used for unknown indication
     Dosage: UNK UNK, BID
     Route: 065

REACTIONS (11)
  - Pneumonia [Unknown]
  - Bronchiolitis [Unknown]
  - Agitation [Unknown]
  - Dyspnoea [Not Recovered/Not Resolved]
  - Bronchitis [Not Recovered/Not Resolved]
  - Asthmatic crisis [Unknown]
  - Dyspnoea [Recovered/Resolved]
  - Fatigue [Recovered/Resolved]
  - Insomnia [Unknown]
  - Illness [Unknown]
  - Asthma [Unknown]

NARRATIVE: CASE EVENT DATE: 20181015
